FAERS Safety Report 5311954-3 (Version None)
Quarter: 2007Q2

REPORT INFORMATION
  Report Type: 
  Country: None (occurrence: None)
  Receive Date: 20070430
  Receipt Date: 20060807
  Transmission Date: 20071010
  Serious: No
  Sender: FDA-Public Use
  Company Number: 2006UW15695

PATIENT
  Age: 85 Year
  Sex: Female
  Weight: 53.5 kg

DRUGS (3)
  1. NEXIUM [Suspect]
     Indication: GASTROOESOPHAGEAL REFLUX DISEASE
     Route: 048
     Dates: start: 20050101
  2. SIMETHICONE [Concomitant]
     Dosage: 2 TABLETS 3X DAY AFTER EACH MEAL
  3. CALCIUM CARBONATE [Concomitant]
     Dosage: 4 TABLETS 3X DAY AFTER EACH MEAL

REACTIONS (2)
  - GASTRIC DISORDER [None]
  - WEIGHT DECREASED [None]
